FAERS Safety Report 10572936 (Version 1)
Quarter: 2014Q4

REPORT INFORMATION
  Report Type: Spontaneous
  Country: FR (occurrence: None)
  Receive Date: 20141106
  Receipt Date: 20141106
  Transmission Date: 20150529
  Serious: Yes (Hospitalization)
  Sender: FDA-Public Use
  Company Number: 2014DEPFR00609

PATIENT
  Age: 52 Year
  Sex: Female
  Weight: 78.9 kg

DRUGS (2)
  1. DEPOCYT(E) (CYTARABINE) LIPOSOME INJECTABLE SUSPENSION [Suspect]
     Active Substance: CYTARABINE
     Indication: METASTASES TO MENINGES
     Route: 037
  2. FORLAX (MACROGOL) [Concomitant]

REACTIONS (4)
  - Constipation [None]
  - Stenotrophomonas infection [None]
  - Device related infection [None]
  - Vomiting [None]

NARRATIVE: CASE EVENT DATE: 20140912
